FAERS Safety Report 11216757 (Version 2)
Quarter: 2015Q3

REPORT INFORMATION
  Report Type: Spontaneous
  Country: BR (occurrence: BR)
  Receive Date: 20150624
  Receipt Date: 20150720
  Transmission Date: 20151125
  Serious: Yes (Other)
  Sender: FDA-Public Use
  Company Number: BR-PFIZER INC-2015206053

PATIENT
  Age: 75 Year
  Sex: Male
  Weight: 58 kg

DRUGS (5)
  1. CLOPIDOGREL BISULFATE. [Concomitant]
     Active Substance: CLOPIDOGREL BISULFATE
     Dosage: 1 TABLET, 1X/DAY
     Dates: start: 2010
  2. LIVALO [Concomitant]
     Active Substance: PITAVASTATIN CALCIUM
     Dosage: 1 TABLET, 1X/DAY
     Dates: start: 201412
  3. FRONTAL XR [Suspect]
     Active Substance: ALPRAZOLAM
     Dosage: 0.5 MG (ONE TABLET), 1X/DAY
     Route: 048
     Dates: start: 2014, end: 20141114
  4. ZOLOFT [Concomitant]
     Active Substance: SERTRALINE HYDROCHLORIDE
     Indication: DEPRESSION
     Dosage: 1 TABLET, 1X/DAY
     Dates: start: 201412
  5. LOTAR [Concomitant]
     Active Substance: AMLODIPINE\LOSARTAN
     Indication: BLOOD PRESSURE MEASUREMENT
     Dosage: 1 TABLET, 1X/DAY
     Dates: start: 2010

REACTIONS (3)
  - Hallucination [Recovered/Resolved]
  - Gastrointestinal carcinoma [Recovering/Resolving]
  - Anaemia [Unknown]
